FAERS Safety Report 9130992 (Version 1)
Quarter: 2013Q1

REPORT INFORMATION
  Report Type: Other
  Country: PL (occurrence: PL)
  Receive Date: 20130301
  Receipt Date: 20130301
  Transmission Date: 20140127
  Serious: Yes (Hospitalization)
  Sender: FDA-Public Use
  Company Number: PL-BRISTOL-MYERS SQUIBB COMPANY-17404575

PATIENT
  Age: 31 Year
  Sex: Female

DRUGS (4)
  1. HYDROXYUREA [Suspect]
     Indication: ESSENTIAL THROMBOCYTHAEMIA
     Dosage: 12 MONTHS BEFORE 500MG/DAY?15 TABS?10GM
  2. DIAZEPAM [Suspect]
     Indication: INSOMNIA
     Dosage: 1DF: 2.5MG-5MG?10 TABS: 5MG
  3. PAROXETINE [Suspect]
  4. ALCOHOL [Suspect]

REACTIONS (4)
  - Macrocytosis [Unknown]
  - White blood cell count decreased [Unknown]
  - Suicide attempt [Unknown]
  - Overdose [Unknown]
